FAERS Safety Report 15100584 (Version 1)
Quarter: 2018Q3

REPORT INFORMATION
  Report Type: Spontaneous
  Country: US (occurrence: US)
  Receive Date: 20180703
  Receipt Date: 20180703
  Transmission Date: 20181010
  Serious: No
  Sender: FDA-Public Use
  Company Number: US-ELI_LILLY_AND_COMPANY-US201806003067

PATIENT
  Age: 95 Year
  Sex: Female

DRUGS (2)
  1. FORTEO [Suspect]
     Active Substance: TERIPARATIDE
     Indication: OSTEOPOROSIS
     Dosage: 20 UG, UNKNOWN
     Route: 058
  2. FORTEO [Suspect]
     Active Substance: TERIPARATIDE
     Indication: SPINAL COMPRESSION FRACTURE

REACTIONS (13)
  - Pain [Unknown]
  - Decreased appetite [Unknown]
  - Arthropathy [Unknown]
  - Asthenia [Unknown]
  - Fatigue [Unknown]
  - Balance disorder [Unknown]
  - Musculoskeletal stiffness [Unknown]
  - Dysgraphia [Unknown]
  - Tremor [Unknown]
  - Asthenia [Recovering/Resolving]
  - Muscular weakness [Unknown]
  - Neuralgia [Unknown]
  - Nausea [Unknown]

NARRATIVE: CASE EVENT DATE: 20180605
